FAERS Safety Report 7981254-1 (Version None)
Quarter: 2011Q4

REPORT INFORMATION
  Report Type: 
  Country: None (occurrence: None)
  Receive Date: 20111215
  Receipt Date: 20111212
  Transmission Date: 20120403
  Serious: No
  Sender: FDA-Public Use
  Company Number: US-PFIZER INC-2011303292

PATIENT
  Sex: Male
  Weight: 81.633 kg

DRUGS (2)
  1. RISPERIDONE [Concomitant]
     Indication: DEPRESSION
     Dosage: 1 MG, UNKNOWN FREQUENCY
  2. EFFEXOR [Suspect]
     Indication: DEPRESSION
     Dosage: 300 MG IN MORNING AND 150 MG IN EVENING
     Route: 048
     Dates: start: 20040101, end: 20090101

REACTIONS (1)
  - NIGHT SWEATS [None]
